APPROVED DRUG PRODUCT: IRINOTECAN HYDROCHLORIDE
Active Ingredient: IRINOTECAN HYDROCHLORIDE
Strength: 40MG/2ML (20MG/ML)
Dosage Form/Route: INJECTABLE;INJECTION
Application: A078805 | Product #001
Applicant: SUN PHARMA GLOBAL INC
Approved: Apr 21, 2008 | RLD: No | RS: No | Type: DISCN